FAERS Safety Report 5065587-7 (Version None)
Quarter: 2006Q3

REPORT INFORMATION
  Report Type: 
  Country: None (occurrence: None)
  Receive Date: 20060731
  Receipt Date: 20050907
  Transmission Date: 20061208
  Serious: Yes (Hospitalization)
  Sender: FDA-Public Use
  Company Number: US-AMGEN-KDL149543

PATIENT
  Sex: Male
  Weight: 59.9 kg

DRUGS (15)
  1. PROCRIT [Suspect]
     Indication: RENAL FAILURE CHRONIC
     Dates: start: 20040101
  2. LIPITOR [Concomitant]
  3. LASIX [Concomitant]
  4. DIGITEK [Concomitant]
  5. CORDARONE [Concomitant]
  6. NORVASC [Concomitant]
  7. PRANDIN [Concomitant]
  8. NIFEREX [Concomitant]
     Route: 048
  9. COZAAR [Concomitant]
  10. SYNTHROID [Concomitant]
  11. ASCORBIC ACID [Concomitant]
  12. MULTIVITAMIN [Concomitant]
  13. FOLTX [Concomitant]
  14. IRON [Concomitant]
  15. METHOTREXATE [Concomitant]

REACTIONS (6)
  - ASTHENIA [None]
  - DYSPNOEA EXERTIONAL [None]
  - FATIGUE [None]
  - HAEMOGLOBIN DECREASED [None]
  - INFECTION [None]
  - WEIGHT DECREASED [None]
